FAERS Safety Report 7119232-7 (Version None)
Quarter: 2010Q4

REPORT INFORMATION
  Report Type: 
  Country: None (occurrence: None)
  Receive Date: 20101123
  Receipt Date: 20101115
  Transmission Date: 20110411
  Serious: Yes (Other)
  Sender: FDA-Public Use
  Company Number: FR-BAYER-201047471GPV

PATIENT
  Age: 26 Year
  Sex: Female
  Weight: 47 kg

DRUGS (6)
  1. CIFLOX [Suspect]
     Dosage: UNIT DOSE: 750 MG
     Route: 048
     Dates: start: 20101011, end: 20101012
  2. CIFLOX [Suspect]
     Dates: start: 20100701
  3. SILDENAFIL CITRATE [Concomitant]
     Dosage: UNIT DOSE: 20 MG
  4. TRIATEC [Concomitant]
  5. AMLOR [Concomitant]
  6. MOTILIUM [Concomitant]

REACTIONS (12)
  - AGRANULOCYTOSIS [None]
  - DRUG HYPERSENSITIVITY [None]
  - DRUG INTOLERANCE [None]
  - ERYTHEMA [None]
  - PARAESTHESIA [None]
  - PERICARDITIS [None]
  - PRURITUS [None]
  - PYREXIA [None]
  - RASH ERYTHEMATOUS [None]
  - RESPIRATORY DISTRESS [None]
  - SENSE OF OPPRESSION [None]
  - TACHYCARDIA [None]
